FAERS Safety Report 4336521-X (Version None)
Quarter: 2004Q2

REPORT INFORMATION
  Report Type: 
  Country: None (occurrence: None)
  Receive Date: 20040407
  Receipt Date: 20040318
  Transmission Date: 20050107
  Serious: Yes (Hospitalization, Other)
  Sender: FDA-Public Use
  Company Number: US_0402101122

PATIENT
  Age: 60 Year
  Sex: Female
  Weight: 48 kg

DRUGS (14)
  1. HUMALOG [Suspect]
     Indication: DIABETES MELLITUS
     Dosage: 10 U/8 DAY
  2. XALATAN [Concomitant]
  3. ALPHAGAN [Concomitant]
  4. BETOPIC (BETAMETHASONE) [Concomitant]
  5. NEORAL [Concomitant]
  6. PREDNISONE TAB [Concomitant]
  7. CELLCEPT [Concomitant]
  8. CARDIZEM CD [Concomitant]
  9. SYNTHROID [Concomitant]
  10. LANTUS [Concomitant]
  11. STOOL SOFTNER (DOCUSATE SODIUM) [Concomitant]
  12. ASPIRIN [Concomitant]
  13. CALCIUM [Concomitant]
  14. MULTI-VITAMIN [Concomitant]

REACTIONS (5)
  - BLINDNESS [None]
  - CEREBROVASCULAR ACCIDENT [None]
  - HIP FRACTURE [None]
  - PHARMACEUTICAL PRODUCT COMPLAINT [None]
  - RENAL TRANSPLANT [None]
